FAERS Safety Report 12426245 (Version 2)
Quarter: 2016Q3

REPORT INFORMATION
  Report Type: Spontaneous
  Country: GB (occurrence: GB)
  Receive Date: 20160601
  Receipt Date: 20160719
  Transmission Date: 20161109
  Serious: Yes (Other)
  Sender: FDA-Public Use
  Company Number: GB-MYLANLABS-2016M1022039

PATIENT

DRUGS (16)
  1. TAMSULOSIN [Suspect]
     Active Substance: TAMSULOSIN
     Dosage: 1 DF, QD
     Dates: start: 20160427
  2. SOLIFENACIN [Suspect]
     Active Substance: SOLIFENACIN
     Dosage: UNK
     Dates: start: 20160120, end: 20160425
  3. ASPIRIN                            /00002701/ [Concomitant]
     Active Substance: ASPIRIN
     Dosage: 1 DF, QD
     Dates: start: 20150929
  4. LACRI-LUBE [Concomitant]
     Dosage: UNK (TO USE AS DIRECTED)
     Dates: start: 20160104
  5. SILDENAFIL. [Concomitant]
     Active Substance: SILDENAFIL
     Dosage: 1 DF, UNK (TAKE ONE 30 MINS BEFORE IT IS REQUIRED) (AS NECSSARY)
     Dates: start: 20160104
  6. FYBOGEL [Concomitant]
     Active Substance: PLANTAGO OVATA SEED
     Dosage: 1 DF, QD
     Dates: start: 20160208
  7. BISOPROLOL [Concomitant]
     Active Substance: BISOPROLOL
     Dosage: 1 DF, BID (AS ADV BY YOUR CONSUL...)
     Dates: start: 20150929
  8. CLARITHROMYCIN. [Concomitant]
     Active Substance: CLARITHROMYCIN
     Dosage: 1 DF, (EVERY 12 HOUR)
     Dates: start: 20160401, end: 20160408
  9. QUININE [Concomitant]
     Active Substance: QUININE
     Dosage: 1 DF, QD
     Dates: start: 20151215
  10. LAXIDO                             /06401201/ [Concomitant]
     Active Substance: POLYETHYLENE GLYCOL 3350\POTASSIUM CHLORIDE\SODIUM BICARBONATE\SODIUM CHLORIDE
     Dosage: UNK (1-3 EVERY DAY)
     Dates: start: 20160208
  11. METHOTREXATE. [Concomitant]
     Active Substance: METHOTREXATE
     Dosage: 5 MG, QW (5 MG (TWO TABLETS))
     Dates: start: 20160208
  12. LANSOPRAZOLE. [Concomitant]
     Active Substance: LANSOPRAZOLE
     Dosage: 2 DF, QD (EACH MORNING)
     Dates: start: 20160208
  13. ATORVASTATIN [Concomitant]
     Active Substance: ATORVASTATIN
     Dosage: 1 DF, QD
     Dates: start: 20150914
  14. FOLIC ACID. [Concomitant]
     Active Substance: FOLIC ACID
     Dosage: 1 DF, QW (AS ADVISED BY YOUR CONSULTANT)
     Dates: start: 20150615, end: 20160418
  15. VITA POS [Concomitant]
     Active Substance: VITAMIN A PALMITATE
     Dosage: UNK (USE AS DIRECTED)
     Dates: start: 20160222
  16. FULTIUM D3 [Concomitant]
     Dosage: 1 DF, QD
     Dates: start: 20151109

REACTIONS (1)
  - Hyperkalaemia [Recovered/Resolved]

NARRATIVE: CASE EVENT DATE: 20160203
